FAERS Safety Report 7605443-0 (Version None)
Quarter: 2011Q3

REPORT INFORMATION
  Report Type: 
  Country: None (occurrence: None)
  Receive Date: 20110713
  Receipt Date: 20110708
  Transmission Date: 20111222
  Serious: No
  Sender: FDA-Public Use
  Company Number: US-PFIZER INC-2011155834

PATIENT
  Sex: Male

DRUGS (5)
  1. LIPITOR [Suspect]
     Dosage: 10 MG, 1X/DAY
  2. LIPITOR [Suspect]
     Dosage: 5 MG, 1X/DAY
  3. LIPITOR [Suspect]
     Dosage: 5 MG, ALTERNATE DAY
  4. AVODART [Concomitant]
     Dosage: UNK
  5. LIPITOR [Suspect]
     Dosage: 10 MG, ALTERNATE DAY

REACTIONS (2)
  - MYALGIA [None]
  - MUSCLE SPASMS [None]
